FAERS Safety Report 6388984-6 (Version None)
Quarter: 2009Q4

REPORT INFORMATION
  Report Type: 
  Country: None (occurrence: None)
  Receive Date: 20091001
  Receipt Date: 20090922
  Transmission Date: 20100525
  Serious: Yes (Life-Threatening, Other)
  Sender: FDA-Public Use
  Company Number: ADR27672009

PATIENT
  Age: 46 Year
  Sex: Female

DRUGS (2)
  1. RAMIPRIL [Suspect]
     Indication: ESSENTIAL HYPERTENSION
     Route: 048
     Dates: start: 20070706, end: 20070918
  2. PARACETAMOL [Concomitant]

REACTIONS (1)
  - SELF-INJURIOUS IDEATION [None]
